FAERS Safety Report 15390116 (Version 3)
Quarter: 2019Q1

REPORT INFORMATION
  Report Type: Spontaneous
  Country: US (occurrence: US)
  Receive Date: 20180917
  Receipt Date: 20190118
  Transmission Date: 20190417
  Serious: Yes (Hospitalization, Other)
  Sender: FDA-Public Use
  Company Number: US-009507513-1809USA003225

PATIENT
  Age: 17 Month
  Sex: Female

DRUGS (12)
  1. METHOTREXATE. [Suspect]
     Active Substance: METHOTREXATE
     Route: 037
  2. ELSPAR [Suspect]
     Active Substance: ASPARAGINASE
     Indication: LEUKAEMIA CUTIS
     Dosage: UNK
  3. VINCRISTINE [Suspect]
     Active Substance: VINCRISTINE
     Indication: LEUKAEMIA CUTIS
     Dosage: UNK
  4. CYCLOPHOSPHAMIDE. [Suspect]
     Active Substance: CYCLOPHOSPHAMIDE
     Indication: LEUKAEMIA CUTIS
     Dosage: UNK
  5. METHOTREXATE. [Suspect]
     Active Substance: METHOTREXATE
     Indication: LEUKAEMIA CUTIS
     Dosage: UNK
     Route: 037
  6. LESTAURTINIB [Suspect]
     Active Substance: LESTAURTINIB
     Indication: LEUKAEMIA CUTIS
     Dosage: UNK
  7. DAUNORUBICIN [Suspect]
     Active Substance: DAUNORUBICIN
     Indication: LEUKAEMIA CUTIS
     Dosage: UNK
  8. ARA-C [Suspect]
     Active Substance: CYTARABINE
     Indication: LEUKAEMIA CUTIS
     Dosage: UNK
     Route: 037
  9. GRANULOCYTE COLONY STIMULATING FACTOR (UNSPECIFIED) [Suspect]
     Active Substance: FILGRASTIM
     Indication: LEUKAEMIA CUTIS
     Dosage: UNK
  10. ETOPOSIDE. [Suspect]
     Active Substance: ETOPOSIDE
     Indication: LEUKAEMIA CUTIS
     Dosage: UNK
  11. METHYLPREDNISOLONE. [Suspect]
     Active Substance: METHYLPREDNISOLONE
     Indication: LEUKAEMIA CUTIS
     Dosage: UNK
  12. HYDROCORTISONE. [Suspect]
     Active Substance: HYDROCORTISONE
     Indication: LEUKAEMIA CUTIS
     Dosage: UNK
     Route: 037

REACTIONS (1)
  - Combined immunodeficiency [Recovered/Resolved]
